FAERS Safety Report 7561065-1 (Version None)
Quarter: 2011Q2

REPORT INFORMATION
  Report Type: 
  Country: None (occurrence: None)
  Receive Date: 20110621
  Receipt Date: 20110613
  Transmission Date: 20111010
  Serious: Yes (Death, Hospitalization, Other)
  Sender: FDA-Public Use
  Company Number: US-CELGENEUS-163-21880-11031766

PATIENT
  Sex: Male
  Weight: 74.002 kg

DRUGS (9)
  1. REVLIMID [Suspect]
     Dosage: 5 MILLIGRAM
     Route: 048
     Dates: start: 20110101, end: 20110301
  2. PLATELETS [Concomitant]
     Dosage: 2 UNITS
     Route: 051
     Dates: start: 20110216
  3. SOTALOL HCL [Concomitant]
     Dosage: 80 MILLIGRAM
     Route: 048
  4. OXYGEN [Concomitant]
     Route: 065
  5. COREG [Concomitant]
     Dosage: 6.25 MILLIGRAM
     Route: 048
  6. DIGOXIN [Concomitant]
     Dosage: .125 MILLIGRAM
     Route: 048
  7. RED BLOOD CELLS [Concomitant]
     Dosage: 2 UNITS
     Route: 051
     Dates: start: 20110216
  8. VITAMIN B-12 [Concomitant]
     Indication: SUPPLEMENTATION THERAPY
     Route: 065
  9. SYMBICORT [Concomitant]
     Route: 055

REACTIONS (4)
  - PANCYTOPENIA [None]
  - DRUG INEFFECTIVE [None]
  - DEATH [None]
  - PNEUMONIA [None]
